FAERS Safety Report 6157264-6 (Version None)
Quarter: 2009Q2

REPORT INFORMATION
  Report Type: 
  Country: None (occurrence: None)
  Receive Date: 20090416
  Receipt Date: 20090406
  Transmission Date: 20091009
  Serious: Yes (Hospitalization)
  Sender: FDA-Public Use
  Company Number: AT-ELI_LILLY_AND_COMPANY-AT200903006943

PATIENT
  Age: 24 Year
  Sex: Male

DRUGS (3)
  1. ZYPREXA [Suspect]
     Indication: SCHIZOPHRENIA, PARANOID TYPE
     Dosage: 60 MG, DAILY (1/D)
     Dates: start: 20090303, end: 20090301
  2. ZYPREXA [Suspect]
     Dosage: 45 MG, DAILY (1/D)
     Dates: start: 20090301, end: 20090320
  3. LORAZEPAM [Concomitant]
     Dosage: 5 MG, DAILY (1/D)

REACTIONS (3)
  - ANTIPSYCHOTIC DRUG LEVEL BELOW THERAPEUTIC [None]
  - OVERDOSE [None]
  - PERSECUTORY DELUSION [None]
